FAERS Safety Report 9174793 (Version 2)
Quarter: 2014Q1

REPORT INFORMATION
  Report Type: Report from Study
  Country: US (occurrence: US)
  Receive Date: 20130320
  Receipt Date: 20140102
  Transmission Date: 20141002
  Serious: Yes (Death, Other)
  Sender: FDA-Public Use
  Company Number: US-BAYER-2013-031978

PATIENT
  Age: 81 Year
  Sex: Male

DRUGS (2)
  1. STIVARGA [Suspect]
     Indication: COLON CANCER
     Dosage: 80 MG, 2 TABLETS DAILY
     Route: 048
     Dates: start: 20130304, end: 20130307
  2. STIVARGA [Suspect]
     Indication: COLON CANCER
     Dosage: 160 MG, 4 X DAILY
     Route: 048
     Dates: start: 2013, end: 20130311

REACTIONS (6)
  - Aphagia [Recovered/Resolved]
  - Somnolence [Recovered/Resolved]
  - Dehydration [Recovered/Resolved]
  - Malaise [None]
  - Confusional state [None]
  - Death [Fatal]
